FAERS Safety Report 21220500 (Version 1)
Quarter: 2022Q3

REPORT INFORMATION
  Report Type: Spontaneous
  Country: FR (occurrence: FR)
  Receive Date: 20220817
  Receipt Date: 20220817
  Transmission Date: 20221026
  Serious: Yes (Hospitalization, Other)
  Sender: FDA-Public Use
  Company Number: None

PATIENT
  Age: 62 Year
  Sex: Male
  Weight: 83 kg

DRUGS (19)
  1. CLONAZEPAM [Suspect]
     Active Substance: CLONAZEPAM
     Indication: Status epilepticus
     Route: 042
     Dates: start: 20220219, end: 20220219
  2. AUGMENTIN [Suspect]
     Active Substance: AMOXICILLIN\CLAVULANATE POTASSIUM
     Indication: Infection prophylaxis
     Dosage: 1G X 3/D ?DAILY DOSE: 3 GRAM
     Dates: start: 20220219, end: 20220222
  3. PHENYTOIN [Suspect]
     Active Substance: PHENYTOIN
     Indication: Status epilepticus
     Dosage: OVER 30 MINUTES?DAILY DOSE: 1250 MILLIGRAM
     Route: 042
     Dates: start: 20220219, end: 20220219
  4. VIMPAT [Concomitant]
     Active Substance: LACOSAMIDE
     Dosage: BID?DAILY DOSE: 300 MILLIGRAM
  5. BRIVIACT [Concomitant]
     Active Substance: BRIVARACETAM
     Dosage: BID
  6. MEDROL [Concomitant]
     Active Substance: METHYLPREDNISOLONE
     Dates: end: 20220221
  7. HYDROCORTISONE [Concomitant]
     Active Substance: HYDROCORTISONE
     Dosage: DAILY DOSE: 30 MILLIGRAM
     Dates: start: 20220223
  8. Low Bactrim [Concomitant]
     Dosage: 400 MG/80 MG X 1/D
  9. LEUCOVORIN CALCIUM [Concomitant]
     Active Substance: LEUCOVORIN CALCIUM
     Dosage: 1/WEEK
  10. DITROPAN [Concomitant]
     Active Substance: OXYBUTYNIN CHLORIDE
     Dosage: DAILY DOSE: 50 MILLIGRAM
  11. MELATONIN [Concomitant]
     Active Substance: MELATONIN
     Dosage: DAILY DOSE: 2 MILLIGRAM
  12. LOVENOX [Concomitant]
     Active Substance: ENOXAPARIN SODIUM
  13. OMEPRAZOLE [Concomitant]
     Active Substance: OMEPRAZOLE
     Dosage: DAILY DOSE: 20 MILLIGRAM
  14. LEVETIRACETAM [Concomitant]
     Active Substance: LEVETIRACETAM
     Dosage: LOADING DOSE
     Dates: start: 20220224
  15. CLOBAZAM [Concomitant]
     Active Substance: CLOBAZAM
     Dosage: CLOBAZAM IN PROGRESSIVE DECREASE UNTIL 28/02/2022
     Dates: start: 20220220, end: 20220228
  16. ETOMIDATE [Concomitant]
     Active Substance: ETOMIDATE
  17. SUCCINYLCHOLINE [Concomitant]
     Active Substance: SUCCINYLCHOLINE
  18. PROPOFOL [Concomitant]
     Active Substance: PROPOFOL
     Dates: end: 20220220
  19. SUFENTANIL [Concomitant]
     Active Substance: SUFENTANIL

REACTIONS (2)
  - Hepatic cytolysis [Recovering/Resolving]
  - Thrombocytopenia [Unknown]

NARRATIVE: CASE EVENT DATE: 20220219
